FAERS Safety Report 19256701 (Version 1)
Quarter: 2021Q2

REPORT INFORMATION
  Report Type: Spontaneous
  Country: US (occurrence: US)
  Receive Date: 20210514
  Receipt Date: 20210514
  Transmission Date: 20210717
  Serious: No
  Sender: FDA-Public Use
  Company Number: US-TEVA-2021-US-1903315

PATIENT
  Age: 64 Year
  Sex: Male

DRUGS (1)
  1. SOTALOL HCL [Suspect]
     Active Substance: SOTALOL
     Indication: VENTRICULAR TACHYCARDIA
     Dosage: FOR 15 YEARS
     Route: 065

REACTIONS (6)
  - Product use in unapproved indication [Not Recovered/Not Resolved]
  - Cardiac pacemaker insertion [Not Recovered/Not Resolved]
  - Mitral valve prolapse [Recovered/Resolved]
  - Product label issue [Unknown]
  - Mitral valve repair [Recovered/Resolved]
  - Cardiac assistance device user [Not Recovered/Not Resolved]
